FAERS Safety Report 5969069-7 (Version None)
Quarter: 2008Q4

REPORT INFORMATION
  Report Type: 
  Country: None (occurrence: None)
  Receive Date: 20081126
  Receipt Date: 20080917
  Transmission Date: 20090506
  Serious: No
  Sender: FDA-Public Use
  Company Number: US-ABBOTT-08P-163-0465568-00

PATIENT
  Sex: Female
  Weight: 72.64 kg

DRUGS (15)
  1. SIMCOR [Suspect]
     Indication: BLOOD CHOLESTEROL INCREASED
     Dosage: 500/20 MG
     Route: 048
     Dates: start: 20080601
  2. PROMETHAZINE [Concomitant]
     Indication: NAUSEA
     Route: 048
  3. VALPROATE SODIUM [Concomitant]
     Indication: CONVULSION
     Route: 048
  4. LORTAB [Concomitant]
     Indication: BACK PAIN
     Dosage: 10/650
     Route: 048
  5. ATENOLOL [Concomitant]
     Indication: MITRAL VALVE PROLAPSE
     Route: 048
  6. EZETIMIBE [Concomitant]
     Indication: BLOOD CHOLESTEROL INCREASED
     Route: 048
  7. SERTRALINE [Concomitant]
     Indication: DEPRESSION
     Route: 048
  8. NORTASE [Concomitant]
     Indication: ENZYME SUPPLEMENTATION
  9. CYCLOBENZAPRINE HCL [Concomitant]
     Indication: MYALGIA
     Route: 048
  10. FUROSEMIDE [Concomitant]
     Indication: FLUID RETENTION
     Route: 048
  11. OMEPRAZOLE MAGNESIUM [Concomitant]
     Indication: DYSPEPSIA
     Route: 048
  12. NIZATIDINE [Concomitant]
     Indication: OESOPHAGEAL ULCER
     Route: 048
  13. CLIMARA PRO [Concomitant]
     Indication: HORMONE REPLACEMENT THERAPY
     Dosage: 0.045/0.015 MG
     Route: 062
  14. SUMATRIPTAN [Concomitant]
     Indication: MIGRAINE
  15. LIDOCAINE [Concomitant]
     Indication: BACK PAIN
     Route: 062

REACTIONS (3)
  - FATIGUE [None]
  - MUSCULAR WEAKNESS [None]
  - NAUSEA [None]
